FAERS Safety Report 23569478 (Version 4)
Quarter: 2024Q2

REPORT INFORMATION
  Report Type: Spontaneous
  Country: JP (occurrence: None)
  Receive Date: 20240227
  Receipt Date: 20240531
  Transmission Date: 20240716
  Serious: Yes (Hospitalization, Other)
  Sender: FDA-Public Use
  Company Number: 2024A013134

PATIENT
  Age: 60 Year
  Sex: Female
  Weight: 50 kg

DRUGS (12)
  1. IMFINZI [Suspect]
     Active Substance: DURVALUMAB
     Indication: Non-small cell lung cancer
     Route: 041
     Dates: start: 20230113, end: 20230719
  2. IMFINZI [Suspect]
     Active Substance: DURVALUMAB
     Indication: Non-small cell lung cancer
     Dosage: 1500.0MG UNKNOWN
     Route: 041
     Dates: start: 20230816, end: 20231212
  3. IMJUDO [Suspect]
     Active Substance: TREMELIMUMAB\TREMELIMUMAB-ACTL
     Indication: Non-small cell lung cancer
     Route: 041
     Dates: start: 20230816, end: 20231114
  4. CARBOPLATIN [Concomitant]
     Active Substance: CARBOPLATIN
     Indication: Non-small cell lung cancer
     Dosage: ONCE EVERY 3-4 WEEKS
     Dates: start: 20230816, end: 20231114
  5. ABRAXANE [Concomitant]
     Active Substance: PACLITAXEL
     Indication: Non-small cell lung cancer
     Dosage: TWICE EVERY 3-4 WEEKS
     Dates: start: 20230816, end: 20231128
  6. URSO [Concomitant]
     Active Substance: URSODIOL
     Indication: Non-small cell lung cancer
     Dosage: DOSE UNKNOWN
  7. SPIRIVA [Concomitant]
     Active Substance: TIOTROPIUM BROMIDE MONOHYDRATE
     Indication: Non-small cell lung cancer
     Dosage: DOSE UNKNOWN
  8. VONOPRAZAN FUMARATE [Concomitant]
     Active Substance: VONOPRAZAN FUMARATE
     Indication: Non-small cell lung cancer
     Dosage: DOSE UNKNOWN
     Route: 048
  9. TEPRENONE [Concomitant]
     Active Substance: TEPRENONE
     Indication: Non-small cell lung cancer
     Dosage: DOSE UNKNOWN
  10. BIO-THREE [Concomitant]
     Active Substance: HERBALS
     Indication: Non-small cell lung cancer
     Dosage: DOSE UNKNOWN
  11. ASTOMIN [Concomitant]
     Indication: Non-small cell lung cancer
     Dosage: DOSE UNKNOWN
     Route: 048
  12. CARBOCYSTEINE [Concomitant]
     Active Substance: CARBOCYSTEINE
     Indication: Non-small cell lung cancer
     Dosage: DOSE UNKNOWN

REACTIONS (2)
  - Aplasia pure red cell [Recovering/Resolving]
  - Immune thrombocytopenia [Recovering/Resolving]

NARRATIVE: CASE EVENT DATE: 20240110
